FAERS Safety Report 6746008-2 (Version None)
Quarter: 2010Q2

REPORT INFORMATION
  Report Type: 
  Country: None (occurrence: None)
  Receive Date: 20100528
  Receipt Date: 20100524
  Transmission Date: 20101027
  Serious: Yes (Other)
  Sender: FDA-Public Use
  Company Number: VE-PFIZER INC-2010065254

PATIENT
  Age: 57 Year
  Sex: Male

DRUGS (1)
  1. ZOLOFT [Suspect]
     Indication: PANIC ATTACK
     Dosage: 100 MG, 1X/DAY
     Route: 048
     Dates: start: 20100520, end: 20100523

REACTIONS (5)
  - ABDOMINAL PAIN [None]
  - BODY TEMPERATURE DECREASED [None]
  - DIARRHOEA [None]
  - DRY MOUTH [None]
  - TIC [None]
